FAERS Safety Report 26086658 (Version 1)
Quarter: 2025Q4

REPORT INFORMATION
  Report Type: Spontaneous
  Country: EU (occurrence: EU)
  Receive Date: 20251125
  Receipt Date: 20251125
  Transmission Date: 20260118
  Serious: Yes (Other)
  Sender: AUROBINDO
  Company Number: EU-AEMPS-1775438

PATIENT
  Sex: Female

DRUGS (1)
  1. AZITHROMYCIN [Suspect]
     Active Substance: AZITHROMYCIN
     Indication: Product used for unknown indication
     Dosage: UNK

REACTIONS (4)
  - Dizziness [Unknown]
  - Nausea [Unknown]
  - Administration site pain [Unknown]
  - Device placement issue [Recovered/Resolved]

NARRATIVE: CASE EVENT DATE: 20250901
